FAERS Safety Report 9098370 (Version 1)
Quarter: 2013Q1

REPORT INFORMATION
  Report Type: Spontaneous
  Country: US (occurrence: US)
  Receive Date: 20130213
  Receipt Date: 20130213
  Transmission Date: 20140127
  Serious: Yes (Other)
  Sender: FDA-Public Use
  Company Number: CHPA2013US002729

PATIENT
  Age: 68 Year
  Sex: Female

DRUGS (1)
  1. EXCEDRIN EXTRA STRENGTH [Suspect]
     Indication: SINUS HEADACHE
     Dosage: 1 DF, PRN
     Route: 048

REACTIONS (3)
  - Myocardial infarction [Recovered/Resolved]
  - Underdose [Unknown]
  - Expired drug administered [Unknown]
